FAERS Safety Report 14633452 (Version 1)
Quarter: 2018Q1

REPORT INFORMATION
  Report Type: Spontaneous
  Country: FR (occurrence: FR)
  Receive Date: 20180313
  Receipt Date: 20180313
  Transmission Date: 20180509
  Serious: Yes (Other)
  Sender: FDA-Public Use
  Company Number: FR-MERCK KGAA-2043669

PATIENT
  Age: 50 Year
  Sex: Male

DRUGS (1)
  1. NOVOTHYROX [Suspect]
     Active Substance: LEVOTHYROXINE SODIUM
     Indication: THYROID DISORDER
     Dates: start: 20170522

REACTIONS (22)
  - Social avoidant behaviour [None]
  - Loss of personal independence in daily activities [None]
  - Suicidal ideation [None]
  - General physical health deterioration [None]
  - Constipation [None]
  - Oropharyngeal pain [None]
  - Pain in extremity [None]
  - Phobia of driving [Not Recovered/Not Resolved]
  - Amnesia [None]
  - Weight increased [None]
  - Social avoidant behaviour [Not Recovered/Not Resolved]
  - Insomnia [None]
  - Gastrointestinal disorder [None]
  - Back pain [None]
  - Diarrhoea [None]
  - Arrhythmia [Not Recovered/Not Resolved]
  - Gait disturbance [None]
  - Disturbance in attention [None]
  - Mucosal dryness [None]
  - Dizziness [None]
  - Fatigue [Not Recovered/Not Resolved]
  - Impaired driving ability [Not Recovered/Not Resolved]

NARRATIVE: CASE EVENT DATE: 201706
